FAERS Safety Report 9150659 (Version 1)
Quarter: 2013Q1

REPORT INFORMATION
  Report Type: Spontaneous
  Country: US (occurrence: US)
  Receive Date: 20130308
  Receipt Date: 20130308
  Transmission Date: 20140127
  Serious: No
  Sender: FDA-Public Use
  Company Number: US-ASTELLAS-2012US012296

PATIENT
  Sex: Male
  Weight: 103 kg

DRUGS (4)
  1. XTANDI [Suspect]
     Indication: PROSTATE CANCER
     Dosage: 160 MG, UID/QD
     Route: 048
     Dates: start: 20121017
  2. XTANDI [Suspect]
     Dosage: 120 MG, UID/QD
     Route: 048
     Dates: start: 201210
  3. FENTANYL [Concomitant]
     Indication: PAIN
     Dosage: 25 MG, ONCE EVERY 3 DAYS
     Route: 065
     Dates: start: 201207
  4. TRAMADOL [Concomitant]
     Indication: PAIN
     Dosage: 50 MG, PRN
     Route: 048
     Dates: start: 201206

REACTIONS (9)
  - Incorrect storage of drug [Unknown]
  - Underdose [Unknown]
  - Abdominal discomfort [Unknown]
  - Nausea [Recovered/Resolved]
  - Prostatic specific antigen decreased [Unknown]
  - Blood alkaline phosphatase decreased [Unknown]
  - Vomiting [Unknown]
  - Pain [Recovering/Resolving]
  - Fatigue [Recovering/Resolving]
